FAERS Safety Report 5746147-9 (Version None)
Quarter: 2008Q2

REPORT INFORMATION
  Report Type: 
  Country: None (occurrence: None)
  Receive Date: 20080520
  Receipt Date: 20080507
  Transmission Date: 20081010
  Serious: Yes (Death, Hospitalization)
  Sender: FDA-Public Use
  Company Number: 2007-04178

PATIENT
  Age: 62 Year
  Sex: Male
  Weight: 83 kg

DRUGS (5)
  1. VELCADE [Suspect]
     Indication: MULTIPLE MYELOMA
     Dosage: 2 MG, INTRAVENOUS ; 1.6 MG, INTRAVENOUS; 1.8 MG, INTRAVENOUS,   2.6 MG, INTRAVENOUS
     Route: 042
     Dates: start: 20071206, end: 20071206
  2. VELCADE [Suspect]
     Indication: MULTIPLE MYELOMA
     Dosage: 2 MG, INTRAVENOUS ; 1.6 MG, INTRAVENOUS; 1.8 MG, INTRAVENOUS,   2.6 MG, INTRAVENOUS
     Route: 042
     Dates: start: 20071227, end: 20071227
  3. VELCADE [Suspect]
     Indication: MULTIPLE MYELOMA
     Dosage: 2 MG, INTRAVENOUS ; 1.6 MG, INTRAVENOUS; 1.8 MG, INTRAVENOUS,   2.6 MG, INTRAVENOUS
     Route: 042
     Dates: start: 20080307, end: 20080317
  4. VELCADE [Suspect]
     Indication: MULTIPLE MYELOMA
     Dosage: 2 MG, INTRAVENOUS ; 1.6 MG, INTRAVENOUS; 1.8 MG, INTRAVENOUS,   2.6 MG, INTRAVENOUS
     Route: 042
     Dates: start: 20071217
  5. ORGADRONE (DEXAMETHASONE SODIUM PHOSPHATE) [Concomitant]

REACTIONS (15)
  - ADHESION [None]
  - ANAEMIA [None]
  - BLOOD LACTATE DEHYDROGENASE INCREASED [None]
  - BRONCHIAL HAEMORRHAGE [None]
  - CARDIAC FAILURE [None]
  - CARDIOMEGALY [None]
  - DISEASE PROGRESSION [None]
  - IMMUNODEFICIENCY [None]
  - NEUTROPENIA [None]
  - PNEUMONIA [None]
  - RESPIRATORY TRACT HAEMORRHAGE [None]
  - RESTLESSNESS [None]
  - THROMBOCYTOPENIA [None]
  - TRACHEAL HAEMORRHAGE [None]
  - URINARY RETENTION [None]
